FAERS Safety Report 8588397-2 (Version None)
Quarter: 2012Q3

REPORT INFORMATION
  Report Type: 
  Country: None (occurrence: None)
  Receive Date: 20120813
  Receipt Date: 20120806
  Transmission Date: 20120928
  Serious: Yes (Death, Hospitalization)
  Sender: FDA-Public Use
  Company Number: JP-SANOFI-AVENTIS-2012SA042784

PATIENT
  Age: 77 Year
  Sex: Male
  Weight: 59.75 kg

DRUGS (9)
  1. SIGMART [Concomitant]
  2. MEROPENEM [Suspect]
     Route: 065
  3. WARFARIN SODIUM [Concomitant]
     Route: 048
  4. MEXIRATE [Concomitant]
     Route: 048
  5. RABEPRAZOLE SODIUM [Concomitant]
     Route: 048
  6. PLAVIX [Suspect]
     Indication: ANGINA PECTORIS
     Route: 048
     Dates: start: 20120604, end: 20120611
  7. PLETAL [Concomitant]
     Route: 048
  8. TICLOPIDINE HCL [Suspect]
     Indication: ANGINA PECTORIS
     Route: 048
     Dates: start: 20120313, end: 20120604
  9. AMIODARONE HYDROCHLORIDE [Suspect]
     Route: 065

REACTIONS (8)
  - BLOOD ALKALINE PHOSPHATASE INCREASED [None]
  - ASPARTATE AMINOTRANSFERASE INCREASED [None]
  - BLOOD LACTATE DEHYDROGENASE INCREASED [None]
  - NEUTROPENIA [None]
  - GAMMA-GLUTAMYLTRANSFERASE INCREASED [None]
  - BLOOD BILIRUBIN INCREASED [None]
  - LIVER DISORDER [None]
  - ALANINE AMINOTRANSFERASE INCREASED [None]
